FAERS Safety Report 8783477 (Version 1)
Quarter: 2012Q4

REPORT INFORMATION
  Report Type: 
  Country: IT (occurrence: IT)
  Receive Date: 20120913
  Receipt Date: 20120913
  Transmission Date: 20130627
  Serious: Yes (Life-Threatening, Hospitalization)
  Sender: FDA-Public Use
  Company Number: PHHY2012IT079388

PATIENT
  Age: 74 Year
  Sex: Female

DRUGS (1)
  1. CEFTRIAXONE [Suspect]
     Indication: BACTERIAL INFECTION
     Dosage: 1 DF, UNK
     Route: 030
     Dates: start: 20120422, end: 20120422

REACTIONS (3)
  - Distributive shock [Recovered/Resolved]
  - Erythema [Recovered/Resolved]
  - Loss of consciousness [Recovered/Resolved]
